FAERS Safety Report 5563669-4 (Version None)
Quarter: 2007Q4

REPORT INFORMATION
  Report Type: 
  Country: None (occurrence: None)
  Receive Date: 20071217
  Receipt Date: 20070723
  Transmission Date: 20080405
  Serious: No
  Sender: FDA-Public Use
  Company Number: US-ASTRAZENECA-2007UW17862

PATIENT
  Age: 60 Year
  Sex: Female
  Weight: 71.7 kg

DRUGS (4)
  1. CRESTOR [Suspect]
     Indication: BLOOD CHOLESTEROL INCREASED
     Route: 048
  2. BENICAR [Concomitant]
  3. ZOLOFT [Concomitant]
  4. CHANTIX [Concomitant]

REACTIONS (2)
  - BURNING SENSATION [None]
  - HOT FLUSH [None]
